FAERS Safety Report 5045968-8 (Version None)
Quarter: 2006Q3

REPORT INFORMATION
  Report Type: 
  Country: None (occurrence: None)
  Receive Date: 20060710
  Receipt Date: 20060621
  Transmission Date: 20061208
  Serious: Yes (Other)
  Sender: FDA-Public Use
  Company Number: JP-AVENTIS-200611931JP

PATIENT
  Age: 78 Year
  Sex: Male

DRUGS (3)
  1. LASIX [Suspect]
     Dates: end: 20050620
  2. LASIX [Suspect]
     Dates: start: 20050803
  3. PREDNISOLONE [Concomitant]

REACTIONS (1)
  - PEMPHIGOID [None]
